FAERS Safety Report 8308620-9 (Version None)
Quarter: 2012Q2

REPORT INFORMATION
  Report Type: 
  Country: None (occurrence: None)
  Receive Date: 20120424
  Receipt Date: 19820430
  Transmission Date: 20120825
  Serious: Yes (Death, Other)
  Sender: FDA-Public Use
  Company Number: FR-ROCHE-14372

PATIENT
  Age: 72 Year
  Sex: Male

DRUGS (8)
  1. PENTOXIFYLLINE [Concomitant]
  2. DIHYDROERGOCRISTIN [Concomitant]
  3. NAFTIDROFURYL [Concomitant]
  4. VINCAMINE [Concomitant]
  5. RAUBASIN [Concomitant]
  6. HEPTAMINOL HCL [Concomitant]
  7. TICLID [Suspect]
     Indication: PRODUCT USED FOR UNKNOWN INDICATION
     Route: 048
     Dates: start: 19790717, end: 19800214
  8. ACEBUTOLOL [Concomitant]

REACTIONS (4)
  - PYREXIA [None]
  - THROMBOCYTOPENIA [None]
  - AGRANULOCYTOSIS [None]
  - BONE MARROW FAILURE [None]
